FAERS Safety Report 18554913 (Version 2)
Quarter: 2021Q1

REPORT INFORMATION
  Report Type: Spontaneous
  Country: US (occurrence: US)
  Receive Date: 20201127
  Receipt Date: 20210206
  Transmission Date: 20210419
  Serious: Yes (Hospitalization)
  Sender: FDA-Public Use
  Company Number: US-TEVA-2020-US-1853205

PATIENT
  Age: 9 Year
  Sex: Male

DRUGS (3)
  1. CASSETTE MEDI RESERVOIR [Suspect]
     Active Substance: DEVICE
     Route: 065
  2. TREPROSTINIL MDV TEVA [Suspect]
     Active Substance: TREPROSTINIL
     Indication: PULMONARY ARTERIAL HYPERTENSION
     Dosage: 42 NG/KG/MIN AND DOSE: 28NKM CONTINUOUS
     Route: 042
     Dates: start: 20190805
  3. TREPROSTINIL MDV TEVA [Suspect]
     Active Substance: TREPROSTINIL
     Dosage: 28 NG/KG/MIN
     Route: 042
     Dates: start: 20200721

REACTIONS (4)
  - Central venous catheterisation [Not Recovered/Not Resolved]
  - Product quality issue [Unknown]
  - Pyrexia [Unknown]
  - Device leakage [Unknown]

NARRATIVE: CASE EVENT DATE: 202101
